FAERS Safety Report 8045175-0 (Version None)
Quarter: 2012Q1

REPORT INFORMATION
  Report Type: 
  Country: None (occurrence: None)
  Receive Date: 20120113
  Receipt Date: 20110831
  Transmission Date: 20120608
  Serious: Yes (Hospitalization)
  Sender: FDA-Public Use
  Company Number: US-ASTRAZENECA-2011SE52280

PATIENT
  Age: 53 Year
  Sex: Male
  Weight: 90.7 kg

DRUGS (1)
  1. SEROQUEL XR [Suspect]
     Indication: HEADACHE
     Route: 048
     Dates: start: 20000101

REACTIONS (2)
  - CEREBROVASCULAR ACCIDENT [None]
  - MALAISE [None]
